FAERS Safety Report 5077949-2 (Version None)
Quarter: 2006Q3

REPORT INFORMATION
  Report Type: 
  Country: None (occurrence: None)
  Receive Date: 20060808
  Receipt Date: 20060725
  Transmission Date: 20061208
  Serious: Yes (Death, Hospitalization, Other)
  Sender: FDA-Public Use
  Company Number: CA200606005586

PATIENT
  Age: 90 Year
  Sex: Male

DRUGS (10)
  1. FORTEO [Suspect]
     Indication: OSTEOPOROSIS
     Dosage: 20 UG, DAILY (1/D)
     Dates: start: 20060309, end: 20060429
  2. FORTEO [Concomitant]
  3. METOPROLOL (METROPOLOL) [Concomitant]
  4. RAMIPRIL [Concomitant]
  5. LIPITOR [Concomitant]
  6. DIGOXIN [Concomitant]
  7. ASPIRIN [Concomitant]
  8. CALCIUM (CALCIUM) [Concomitant]
  9. LIPIDIL [Concomitant]
  10. AMANTADINE HCL [Concomitant]

REACTIONS (4)
  - FALL [None]
  - LOSS OF CONSCIOUSNESS [None]
  - MYOCARDIAL INFARCTION [None]
  - SUBDURAL HAEMATOMA [None]
